FAERS Safety Report 10257908 (Version 1)
Quarter: 2014Q2

REPORT INFORMATION
  Report Type: Spontaneous
  Country: US (occurrence: US)
  Receive Date: 20140625
  Receipt Date: 20140625
  Transmission Date: 20141212
  Serious: No
  Sender: FDA-Public Use
  Company Number: US-PFIZER INC-2014170977

PATIENT
  Age: 54 Year
  Sex: Female
  Weight: 124.74 kg

DRUGS (7)
  1. DILANTIN-125 [Suspect]
     Dosage: UNK
  2. DOXYCYCLINE HYCLATE [Suspect]
     Dosage: UNK
  3. SEPTRA [Suspect]
     Dosage: UNK
  4. CEPHALEXIN MONOHYDRATE [Suspect]
     Dosage: UNK
  5. DARVON [Suspect]
     Dosage: UNK
  6. IMIPRAMINE HCL [Suspect]
     Dosage: UNK
  7. OXYBUTYNIN CHLORIDE [Suspect]
     Dosage: UNK

REACTIONS (4)
  - Drug hypersensitivity [Unknown]
  - Food allergy [Unknown]
  - Rubber sensitivity [Unknown]
  - Milk allergy [Unknown]
